FAERS Safety Report 23719936 (Version 1)
Quarter: 2024Q2

REPORT INFORMATION
  Report Type: Spontaneous
  Country: CA (occurrence: CA)
  Receive Date: 20240408
  Receipt Date: 20240408
  Transmission Date: 20240715
  Serious: Yes (Hospitalization, Other)
  Sender: FDA-Public Use
  Company Number: CA-TEVA-VS-3179125

PATIENT
  Age: 7 Year
  Sex: Female
  Weight: 29 kg

DRUGS (6)
  1. METHOTREXATE [Suspect]
     Active Substance: METHOTREXATE
     Indication: Acute lymphocytic leukaemia
     Route: 048
     Dates: start: 20220126, end: 20240312
  2. METHOTREXATE [Suspect]
     Active Substance: METHOTREXATE
     Indication: Acute lymphocytic leukaemia
     Route: 037
     Dates: start: 20220401, end: 20240312
  3. PREDNISONE [Suspect]
     Active Substance: PREDNISONE
     Indication: Acute lymphocytic leukaemia
     Route: 048
     Dates: start: 20230119, end: 20240218
  4. VINCRISTINE [Suspect]
     Active Substance: VINCRISTINE
     Indication: Acute lymphocytic leukaemia
     Dosage: ONCE
     Route: 042
     Dates: start: 20220401, end: 20240214
  5. RUXOLITINIB [Suspect]
     Active Substance: RUXOLITINIB
     Route: 065
     Dates: start: 20220825, end: 20240227
  6. MERCAPTOPURINE [Suspect]
     Active Substance: MERCAPTOPURINE
     Indication: Acute lymphocytic leukaemia
     Route: 065
     Dates: start: 20230401, end: 20240312

REACTIONS (6)
  - Febrile neutropenia [Recovered/Resolved]
  - Pulmonary congestion [Not Recovered/Not Resolved]
  - Respirovirus test [Unknown]
  - Upper respiratory tract infection [Unknown]
  - Productive cough [Unknown]
  - Wheezing [Unknown]

NARRATIVE: CASE EVENT DATE: 20240312
